FAERS Safety Report 10924480 (Version 2)
Quarter: 2015Q2

REPORT INFORMATION
  Report Type: Spontaneous
  Country: US (occurrence: US)
  Receive Date: 20150318
  Receipt Date: 20150524
  Transmission Date: 20150821
  Serious: No
  Sender: FDA-Public Use
  Company Number: US-JNJFOC-20131014068

PATIENT
  Sex: Male

DRUGS (2)
  1. PONATINIB [Interacting]
     Active Substance: PONATINIB
     Indication: ACUTE LYMPHOCYTIC LEUKAEMIA
     Dosage: SINGLE DOSE: 240 ML OF WATER IN THE MORNING ON DAY 1
     Route: 065
  2. KETOCONAZOLE. [Suspect]
     Active Substance: KETOCONAZOLE
     Indication: PRODUCT USED FOR UNKNOWN INDICATION
     Route: 065

REACTIONS (3)
  - Somnolence [Recovered/Resolved]
  - Headache [Recovered/Resolved]
  - Drug interaction [Unknown]
